FAERS Safety Report 12683603 (Version 8)
Quarter: 2016Q4

REPORT INFORMATION
  Report Type: Report from Study
  Country: US (occurrence: US)
  Receive Date: 20160825
  Receipt Date: 20161206
  Transmission Date: 20170207
  Serious: Yes (Death, Other)
  Sender: FDA-Public Use
  Company Number: US-009507513-1608USA010539

PATIENT
  Age: 38 Year
  Sex: Male

DRUGS (3)
  1. PEMBROLIZUMAB. [Suspect]
     Active Substance: PEMBROLIZUMAB
     Indication: MALIGNANT MELANOMA
     Dosage: UNK
     Dates: start: 20160825
  2. PEMBROLIZUMAB. [Suspect]
     Active Substance: PEMBROLIZUMAB
     Dosage: UNK
     Dates: start: 2016
  3. PREDNISONE. [Suspect]
     Active Substance: PREDNISONE
     Indication: DIARRHOEA HAEMORRHAGIC
     Dosage: UNK
     Route: 048
     Dates: start: 201602

REACTIONS (8)
  - Localised infection [Unknown]
  - Hypersomnia [Unknown]
  - Diabetes mellitus [Unknown]
  - Hypothyroidism [Unknown]
  - Mass [Unknown]
  - Diabetic complication [Fatal]
  - Malignant neoplasm progression [Unknown]
  - Urticaria [Recovering/Resolving]

NARRATIVE: CASE EVENT DATE: 2016
